FAERS Safety Report 17949385 (Version 1)
Quarter: 2020Q2

REPORT INFORMATION
  Report Type: Spontaneous
  Country: CZ (occurrence: CZ)
  Receive Date: 20200626
  Receipt Date: 20200626
  Transmission Date: 20200714
  Serious: Yes (Life-Threatening, Hospitalization)
  Sender: FDA-Public Use
  Company Number: CZ-ACCORD-186852

PATIENT
  Age: 74 Year
  Sex: Female
  Weight: 80 kg

DRUGS (2)
  1. ISOLYTE [Concomitant]
     Indication: FLUID REPLACEMENT
     Route: 042
     Dates: start: 20200610, end: 20200610
  2. ONDANSETRON ACCORD [Suspect]
     Active Substance: ONDANSETRON
     Indication: VOMITING
     Dosage: SINGLE DOSE
     Route: 042
     Dates: start: 20200610, end: 20200610

REACTIONS (2)
  - Generalised tonic-clonic seizure [Recovering/Resolving]
  - Status epilepticus [Recovering/Resolving]

NARRATIVE: CASE EVENT DATE: 20200610
